FAERS Safety Report 19889570 (Version 1)
Quarter: 2021Q3

REPORT INFORMATION
  Report Type: Report from Study
  Country: FI (occurrence: FI)
  Receive Date: 20210928
  Receipt Date: 20210928
  Transmission Date: 20211014
  Serious: Yes (Other)
  Sender: FDA-Public Use
  Company Number: FI-MYLANLABS-2021M1062622

PATIENT
  Age: 24 Year
  Sex: Male

DRUGS (9)
  1. LEPONEX [Suspect]
     Active Substance: CLOZAPINE
     Dosage: UNK
     Dates: start: 202101, end: 2021
  2. TENOX                              /00393701/ [Concomitant]
     Active Substance: TEMAZEPAM
     Dosage: WHEN NEEDED
  3. VI?SIBLIN                          /00029101/ [Concomitant]
     Active Substance: HERBALS\PLANTAGO OVATA LEAF
     Dosage: WHEN NEEDED
  4. OLANZAPINE. [Concomitant]
     Active Substance: OLANZAPINE
     Dosage: 15 MILLIGRAM, QD
     Dates: start: 20201229
  5. OLANZAPINE. [Concomitant]
     Active Substance: OLANZAPINE
     Dosage: WHEN NEEDED
  6. LEPONEX [Suspect]
     Active Substance: CLOZAPINE
     Indication: SCHIZOPHRENIA
     Dosage: UNK, QD (WITH SLOW INCREASES TO A DOSE OF 150 MG)
     Dates: start: 20201223, end: 20210112
  7. SOMAC [Concomitant]
     Active Substance: PANTOPRAZOLE SODIUM
     Dosage: WHEN NEEDED
  8. BISOPROLOL [Concomitant]
     Active Substance: BISOPROLOL
     Dosage: 2.5 MILLIGRAM, QD
     Dates: start: 20210111
  9. OPAMOX [Concomitant]
     Active Substance: OXAZEPAM
     Dosage: WHEN NEEDED
     Dates: start: 20201230

REACTIONS (8)
  - Chest discomfort [Recovered/Resolved]
  - Eosinophilic myocarditis [Recovered/Resolved]
  - Tricuspid valve stenosis [Recovered/Resolved]
  - Eosinophil count increased [Recovered/Resolved]
  - Cardiomegaly [Recovered/Resolved]
  - Blood pressure increased [Recovered/Resolved]
  - Heart rate increased [Recovered/Resolved]
  - Troponin I increased [Recovered/Resolved]

NARRATIVE: CASE EVENT DATE: 202101
